FAERS Safety Report 5974905-4 (Version None)
Quarter: 2008Q4

REPORT INFORMATION
  Report Type: 
  Country: None (occurrence: None)
  Receive Date: 20081202
  Receipt Date: 20081124
  Transmission Date: 20090506
  Serious: Yes (Hospitalization)
  Sender: FDA-Public Use
  Company Number: FR-PFIZER INC-2008099824

PATIENT
  Age: 51 Year
  Sex: Male

DRUGS (4)
  1. LYRICA [Suspect]
     Indication: PAIN
     Dosage: DAILY DOSE:300MG
     Route: 048
  2. TRIFLUCAN [Interacting]
     Indication: FUNGAL INFECTION
     Route: 048
     Dates: start: 20081017, end: 20081019
  3. TEGRETOL [Interacting]
     Indication: EPILEPSY
     Dosage: DAILY DOSE:400MG
     Route: 048
  4. MICONAZOLE NITRATE [Concomitant]
     Indication: CHEILITIS

REACTIONS (3)
  - DRUG INTERACTION [None]
  - FALL [None]
  - SOMNOLENCE [None]
